FAERS Safety Report 8557933-4 (Version None)
Quarter: 2012Q3

REPORT INFORMATION
  Report Type: 
  Country: None (occurrence: None)
  Receive Date: 20120801
  Receipt Date: 20120727
  Transmission Date: 20120928
  Serious: Yes (Other)
  Sender: FDA-Public Use
  Company Number: PHEH2012US013812

PATIENT
  Sex: Female

DRUGS (7)
  1. SYNTHROID [Concomitant]
     Dosage: 150 UG, PER DAY
     Route: 048
  2. RECLAST [Suspect]
     Dosage: UNK UKN, UNK
     Route: 042
     Dates: start: 20100401
  3. AROMASIN [Concomitant]
     Dosage: 25 MG, DAILY
     Route: 048
  4. GABAPENTIN [Concomitant]
     Dosage: 800 MG, QD
     Route: 048
  5. LOPRESSOR [Concomitant]
     Indication: HYPERTENSION
     Dosage: 50 MG, BID
  6. MOBRE [Concomitant]
     Dosage: 15 MG, UNK
     Route: 048
  7. ATORVASTATIN [Concomitant]
     Dosage: 80 MG, UNK
     Route: 048

REACTIONS (1)
  - NEOPLASM MALIGNANT [None]
